FAERS Safety Report 10438441 (Version 2)
Quarter: 2015Q2

REPORT INFORMATION
  Report Type: Spontaneous
  Country: JP (occurrence: JP)
  Receive Date: 20140908
  Receipt Date: 20150630
  Transmission Date: 20150821
  Serious: Yes (Death, Other)
  Sender: FDA-Public Use
  Company Number: JP-GLAXOSMITHKLINE-B1022201A

PATIENT
  Age: 66 Year
  Sex: Male
  Weight: 60 kg

DRUGS (6)
  1. ALLOPURINOL. [Suspect]
     Active Substance: ALLOPURINOL
     Indication: HYPERURICAEMIA
     Dosage: 100 MG, QD
     Route: 048
     Dates: start: 20140311, end: 20140804
  2. DIOVAN [Suspect]
     Active Substance: VALSARTAN
     Indication: HYPERTENSION
     Dosage: 40 MG, QD
     Route: 048
     Dates: start: 20140311, end: 20140804
  3. EVEROLIMUS [Concomitant]
     Active Substance: EVEROLIMUS
     Indication: RENAL CELL CARCINOMA STAGE IV
     Dosage: 10 MG, 1D
  4. PAZOPANIB [Suspect]
     Active Substance: PAZOPANIB
     Indication: RENAL CELL CARCINOMA STAGE IV
  5. PAZOPANIB [Suspect]
     Active Substance: PAZOPANIB
     Indication: RENAL CANCER
     Dosage: 600 MG, QD
     Route: 048
     Dates: start: 20140321, end: 20140804
  6. ANALGESICS, ANTI-ITCHINGS, ASTRIGENTS AND ANTI-INF [Concomitant]
     Indication: ARTHRALGIA

REACTIONS (12)
  - Necrotising fasciitis [Fatal]
  - Arthralgia [Unknown]
  - Multi-organ failure [Fatal]
  - Retroperitoneal abscess [Fatal]
  - Dysgeusia [Unknown]
  - Septic shock [Fatal]
  - Hair colour changes [Unknown]
  - Abdominal pain [Fatal]
  - Pain [Unknown]
  - Large intestine perforation [Fatal]
  - Disseminated intravascular coagulation [Fatal]
  - Dyspnoea [Unknown]

NARRATIVE: CASE EVENT DATE: 201407
